FAERS Safety Report 5818369-X (Version None)
Quarter: 2008Q3

REPORT INFORMATION
  Report Type: 
  Country: None (occurrence: None)
  Receive Date: 20080722
  Receipt Date: 20080714
  Transmission Date: 20090109
  Serious: Yes (Other)
  Sender: FDA-Public Use
  Company Number: BR-PFIZER INC-2008059307

PATIENT
  Sex: Female
  Weight: 74 kg

DRUGS (4)
  1. XALATAN [Suspect]
     Indication: GLAUCOMA
     Route: 047
  2. GLUCOFORMIN [Concomitant]
     Indication: DIABETES MELLITUS
  3. ENALAPRIL MALEATE AND HYDROCHLOROTHIAZIDE [Concomitant]
     Indication: HYPERTENSION
  4. COMBIGAN [Concomitant]
     Indication: INTRAOCULAR PRESSURE TEST

REACTIONS (5)
  - CATARACT OPERATION [None]
  - INTRAOCULAR PRESSURE INCREASED [None]
  - MEDICATION ERROR [None]
  - OCULAR HYPERAEMIA [None]
  - SKIN DISCOLOURATION [None]
